FAERS Safety Report 24743794 (Version 1)
Quarter: 2024Q4

REPORT INFORMATION
  Report Type: Report from Study
  Country: GB (occurrence: GB)
  Receive Date: 20241217
  Receipt Date: 20241217
  Transmission Date: 20250115
  Serious: Yes (Hospitalization, Other)
  Sender: SANDOZ
  Company Number: GB-002147023-NVSC2023GB078647

PATIENT
  Sex: Female

DRUGS (1)
  1. ERELZI [Suspect]
     Active Substance: ETANERCEPT-SZZS
     Indication: Rheumatoid arthritis
     Dosage: 50 MG, Q2W (PRE-FILLED SYRINGE)
     Route: 058
     Dates: start: 202205, end: 202212

REACTIONS (3)
  - Coma [Recovered/Resolved]
  - Influenza [Unknown]
  - Off label use [Unknown]
